FAERS Safety Report 6004775-X (Version None)
Quarter: 2008Q4

REPORT INFORMATION
  Report Type: 
  Country: None (occurrence: None)
  Receive Date: 20081216
  Receipt Date: 20081204
  Transmission Date: 20090506
  Serious: Yes (Hospitalization, Other)
  Sender: FDA-Public Use
  Company Number: US-ELI_LILLY_AND_COMPANY-US200812001571

PATIENT
  Age: 89 Year
  Sex: Female

DRUGS (1)
  1. ZYPREXA [Suspect]
     Dosage: 25 MG, UNK

REACTIONS (4)
  - ACCIDENTAL OVERDOSE [None]
  - HOSPITALISATION [None]
  - HYPOTENSION [None]
  - MEDICATION ERROR [None]
